FAERS Safety Report 18211565 (Version 1)
Quarter: 2020Q3

REPORT INFORMATION
  Report Type: Spontaneous
  Country: FR (occurrence: FR)
  Receive Date: 20200831
  Receipt Date: 20200831
  Transmission Date: 20201103
  Serious: Yes (Other)
  Sender: FDA-Public Use
  Company Number: FR-TEVA-2020-FR-1821041

PATIENT
  Age: 65 Year
  Sex: Male
  Weight: 75 kg

DRUGS (5)
  1. ACIDE FOLIQUE [Concomitant]
     Active Substance: FOLIC ACID
     Dosage: 0.4MG
     Route: 048
  2. SERETIDE [Concomitant]
     Active Substance: FLUTICASONE PROPIONATE\SALMETEROL XINAFOATE
     Route: 055
  3. COTRIMOXAZOLE [Suspect]
     Active Substance: SULFAMETHOXAZOLE\TRIMETHOPRIM
     Indication: OSTEITIS
     Dosage: 2 DOSAGE FORMS
     Route: 048
     Dates: start: 20200709, end: 20200720
  4. TRIATEC 5 MG, GELULE [Concomitant]
     Dosage: 5MG
     Route: 048
  5. OFLOXACINE EG 200 MG, COMPRIME PELLICULE SECABLE [Suspect]
     Active Substance: OFLOXACIN
     Indication: OSTEITIS
     Dosage: 2 DOSAGE FORMS
     Route: 048
     Dates: start: 20200625, end: 20200721

REACTIONS (2)
  - Rash maculo-papular [Recovering/Resolving]
  - Hyperthermia [Recovered/Resolved]

NARRATIVE: CASE EVENT DATE: 20200719
